FAERS Safety Report 5501813-5 (Version None)
Quarter: 2007Q4

REPORT INFORMATION
  Report Type: 
  Country: None (occurrence: None)
  Receive Date: 20071018
  Receipt Date: 20070730
  Transmission Date: 20080405
  Serious: Yes (Other)
  Sender: FDA-Public Use
  Company Number: PHEH2007US10668

PATIENT
  Sex: Male

DRUGS (1)
  1. EXFORGE [Suspect]
     Indication: HYPERTENSION
     Dosage: 5-160MG, QD, ORAL
     Route: 048

REACTIONS (2)
  - TYPE 2 DIABETES MELLITUS [None]
  - VISION BLURRED [None]
